FAERS Safety Report 18349948 (Version 1)
Quarter: 2020Q4

REPORT INFORMATION
  Report Type: Spontaneous
  Country: US (occurrence: US)
  Receive Date: 20201006
  Receipt Date: 20201006
  Transmission Date: 20210114
  Serious: No
  Sender: FDA-Public Use
  Company Number: None

PATIENT
  Age: 38 Year
  Sex: Female
  Weight: 65.77 kg

DRUGS (1)
  1. MIRENA [Suspect]
     Active Substance: LEVONORGESTREL

REACTIONS (8)
  - Weight increased [None]
  - Disturbance in attention [None]
  - Vision blurred [None]
  - Depression [None]
  - Feeling abnormal [None]
  - Back pain [None]
  - Bone pain [None]
  - Anxiety [None]

NARRATIVE: CASE EVENT DATE: 20200801
